FAERS Safety Report 11547133 (Version 1)
Quarter: 2015Q3

REPORT INFORMATION
  Report Type: Spontaneous
  Country: US (occurrence: US)
  Receive Date: 20150903
  Receipt Date: 20150903
  Transmission Date: 20151125
  Serious: No
  Sender: FDA-Public Use
  Company Number: US-ELI_LILLY_AND_COMPANY-US201012003632

PATIENT
  Sex: Male

DRUGS (16)
  1. METOPROLOL TARTRATE. [Concomitant]
     Active Substance: METOPROLOL TARTRATE
     Dosage: 81 MG, DAILY (1/D)
  2. HUMALOG [Suspect]
     Active Substance: INSULIN LISPRO
     Dosage: 10 U, 3/D
  3. DIGOXIN. [Concomitant]
     Active Substance: DIGOXIN
  4. SIMVASTATIN. [Concomitant]
     Active Substance: SIMVASTATIN
     Dosage: 40 MG, UNK
  5. TAMSULOSIN [Concomitant]
     Active Substance: TAMSULOSIN
     Dosage: UNK, EACH EVENING
  6. HUMALOG [Suspect]
     Active Substance: INSULIN LISPRO
     Dosage: 13 U, 3/D
  7. ISOSORBIDE. [Concomitant]
     Active Substance: ISOSORBIDE
     Dosage: 30 MG, UNK
  8. HUMALOG [Suspect]
     Active Substance: INSULIN LISPRO
     Indication: DIABETES MELLITUS
     Dosage: 10 U, 3/D
  9. WARFARIN [Concomitant]
     Active Substance: WARFARIN
  10. LANTUS [Concomitant]
     Active Substance: INSULIN GLARGINE
     Dosage: 25 U, UNK
  11. SYMLIN [Concomitant]
     Active Substance: PRAMLINTIDE ACETATE
     Dosage: 10 U, 3/D
  12. AVODART [Concomitant]
     Active Substance: DUTASTERIDE
  13. HUMALOG [Suspect]
     Active Substance: INSULIN LISPRO
     Dosage: 13 U, 3/D
  14. LANTUS [Concomitant]
     Active Substance: INSULIN GLARGINE
     Dosage: 25 U, UNK
  15. ACTOS [Concomitant]
     Active Substance: PIOGLITAZONE HYDROCHLORIDE
     Dosage: UNK, 2/D
  16. DIOVAN [Concomitant]
     Active Substance: VALSARTAN
     Dosage: 80 MG, UNK

REACTIONS (3)
  - Dysuria [Recovered/Resolved]
  - Atrial fibrillation [Unknown]
  - Blood glucose increased [Recovered/Resolved]

NARRATIVE: CASE EVENT DATE: 2009
